FAERS Safety Report 9918652 (Version 1)
Quarter: 2014Q1

REPORT INFORMATION
  Report Type: Spontaneous
  Country: GB (occurrence: GB)
  Receive Date: 20140224
  Receipt Date: 20140224
  Transmission Date: 20141002
  Serious: Yes (Disabling)
  Sender: FDA-Public Use
  Company Number: GB-ROCHE-1350328

PATIENT
  Age: 71 Year
  Sex: Male

DRUGS (15)
  1. ROACTEMRA [Suspect]
     Indication: RHEUMATOID ARTHRITIS
     Route: 042
     Dates: start: 20120525, end: 20131106
  2. ALENDRONIC ACID [Concomitant]
  3. ASPIRIN [Concomitant]
  4. BUMETANIDE [Concomitant]
  5. CALCICHEW D3 [Concomitant]
  6. DOXAZOSIN [Concomitant]
  7. FOLIC ACID [Concomitant]
  8. GABAPENTIN [Concomitant]
  9. GLICLAZIDE [Concomitant]
  10. LEVEMIR [Concomitant]
  11. LISINOPRIL [Concomitant]
  12. METHOTREXATE [Concomitant]
  13. PREDNISOLONE [Concomitant]
  14. SIMVASTATIN [Concomitant]
  15. TRAMADOL [Concomitant]

REACTIONS (3)
  - Bladder cancer [Not Recovered/Not Resolved]
  - Haematuria [Not Recovered/Not Resolved]
  - Prostate cancer [Not Recovered/Not Resolved]
